FAERS Safety Report 5085949-1 (Version None)
Quarter: 2006Q3

REPORT INFORMATION
  Report Type: 
  Country: None (occurrence: None)
  Receive Date: 20060822
  Receipt Date: 20060816
  Transmission Date: 20061208
  Serious: Yes (Hospitalization)
  Sender: FDA-Public Use
  Company Number: US-MERCK-0608USA03937

PATIENT
  Age: 61 Year
  Sex: Female

DRUGS (3)
  1. FOSAMAX [Suspect]
     Indication: OSTEOPOROSIS
     Route: 048
  2. PREDNISONE [Concomitant]
     Indication: RHEUMATOID ARTHRITIS
     Route: 065
  3. ARAVA [Concomitant]
     Indication: RHEUMATOID ARTHRITIS
     Route: 065

REACTIONS (3)
  - OSTEONECROSIS [None]
  - TOOTH ABSCESS [None]
  - TOOTH EXTRACTION [None]
